FAERS Safety Report 13020212 (Version 2)
Quarter: 2016Q4

REPORT INFORMATION
  Report Type: Spontaneous
  Country: IT (occurrence: IT)
  Receive Date: 20161212
  Receipt Date: 20161221
  Transmission Date: 20170207
  Serious: Yes (Death)
  Sender: FDA-Public Use
  Company Number: IT-PFIZER INC-2016568029

PATIENT
  Age: 55 Year
  Sex: Male

DRUGS (7)
  1. CYCLOSPORINE. [Concomitant]
     Active Substance: CYCLOSPORINE
     Indication: PROPHYLAXIS
     Dosage: UNK, STANDARD DOSE
     Dates: start: 2010, end: 20101226
  2. MYCOPHENOLATE [Concomitant]
     Active Substance: MYCOPHENOLIC ACID
     Dosage: UNK
     Dates: start: 20101226
  3. FLUDARABINE PHOSPHATE. [Suspect]
     Active Substance: FLUDARABINE PHOSPHATE
     Indication: STEM CELL TRANSPLANT
     Dosage: 30 MG/M2, DAILY (ON DAYS -3 AND -2)
     Dates: start: 201011
  4. THIOTEPA. [Concomitant]
     Active Substance: THIOTEPA
     Indication: STEM CELL TRANSPLANT
     Dosage: 5 MG/KG, EVERY 12 H FOR TWO DOSES (ON DAYS -3 AND -2)
     Dates: start: 201011
  5. METHOTREXATE. [Concomitant]
     Active Substance: METHOTREXATE
     Indication: PROPHYLAXIS
     Dosage: UNK, SHORT COURSE
     Dates: start: 2010
  6. METHYLPREDNISOLONE. [Concomitant]
     Active Substance: METHYLPREDNISOLONE
     Dosage: UNK
     Dates: start: 20101226
  7. METHYLPREDNISOLONE. [Concomitant]
     Active Substance: METHYLPREDNISOLONE
     Dosage: 2 MG/KG, UNK

REACTIONS (4)
  - Motor dysfunction [Fatal]
  - Graft versus host disease [Fatal]
  - Paraplegia [Fatal]
  - Neurotoxicity [Fatal]
